FAERS Safety Report 10092983 (Version 1)
Quarter: 2014Q2

REPORT INFORMATION
  Report Type: Spontaneous
  Country: US (occurrence: US)
  Receive Date: 20140421
  Receipt Date: 20140421
  Transmission Date: 20141212
  Serious: No
  Sender: FDA-Public Use
  Company Number: US-SA-2013SA104899

PATIENT
  Age: 80 Year
  Sex: Female
  Weight: 64 kg

DRUGS (5)
  1. ALLEGRA [Suspect]
     Indication: ALLERGIC SINUSITIS
     Route: 048
     Dates: start: 20130902
  2. MELOXICAM [Concomitant]
     Indication: ARTHRITIS
  3. FOLIC ACID [Concomitant]
     Indication: BLOOD DISORDER
  4. LISINOPRIL [Concomitant]
  5. HYDROCHLOROTHIAZIDE [Concomitant]

REACTIONS (1)
  - Blood pressure increased [Recovered/Resolved]
